FAERS Safety Report 4796586-8 (Version None)
Quarter: 2005Q4

REPORT INFORMATION
  Report Type: 
  Country: None (occurrence: None)
  Receive Date: 20051011
  Receipt Date: 20050105
  Transmission Date: 20060501
  Serious: Yes (Other)
  Sender: FDA-Public Use
  Company Number: US-JNJFOC-20050101415

PATIENT
  Sex: Male

DRUGS (2)
  1. ULTRACET [Suspect]
     Indication: DRUG USE FOR UNKNOWN INDICATION
     Dosage: 3-4 TIMES THE RECOMMENDED DOSE
  2. NARCOTIC (ANALGESICS) [Concomitant]

REACTIONS (1)
  - DRUG ABUSER [None]
